FAERS Safety Report 12625724 (Version 1)
Quarter: 2016Q3

REPORT INFORMATION
  Report Type: Spontaneous
  Country: US (occurrence: None)
  Receive Date: 20160804
  Receipt Date: 20160804
  Transmission Date: 20161109
  Serious: Yes (Life-Threatening, Hospitalization)
  Sender: FDA-Public Use
  Company Number: None

PATIENT
  Age: 1 Month
  Sex: Female
  Weight: 116.5 kg

DRUGS (2)
  1. DESOGESTREL/ETHINYL ESTRADIOL WATSON [Suspect]
     Active Substance: DESOGESTREL\ETHINYL ESTRADIOL
     Indication: ORAL CONTRACEPTION
     Route: 048
  2. DESOGESTREL/ETHINYL ESTRADIOL  AND ETHINYL ESTRADIOL (AZURETTE 28) [Concomitant]

REACTIONS (7)
  - Hypertension [None]
  - Pain [None]
  - Embolism [None]
  - Acute myocardial infarction [None]
  - Arthralgia [None]
  - Chest pain [None]
  - Coronary artery thrombosis [None]

NARRATIVE: CASE EVENT DATE: 20160629
